FAERS Safety Report 8410149-4 (Version None)
Quarter: 2012Q2

REPORT INFORMATION
  Report Type: 
  Country: None (occurrence: None)
  Receive Date: 20120605
  Receipt Date: 20120529
  Transmission Date: 20120825
  Serious: Yes (Other)
  Sender: FDA-Public Use
  Company Number: PHHY2011US40256

PATIENT
  Sex: Female
  Weight: 80.726 kg

DRUGS (8)
  1. NIFEDIPINE [Concomitant]
     Indication: RAYNAUD'S PHENOMENON
  2. METOPROLOL TARTRATE [Concomitant]
     Dosage: 25 MG, BID (ONE EACH MORNING AND EVENING)
     Route: 048
  3. GLEEVEC [Suspect]
     Indication: EOSINOPHILIA
     Dosage: 350 MG, QD
     Route: 048
     Dates: start: 20090409
  4. GLEEVEC [Suspect]
     Dosage: 350 MG DAILY
     Route: 048
  5. GLEEVEC [Suspect]
     Indication: SYSTEMIC SCLEROSIS
     Dosage: 350 MG, DAILY
     Route: 048
     Dates: start: 20070705
  6. NEXIUM [Concomitant]
     Indication: SYSTEMIC SCLEROSIS
     Dosage: 40 MG, EVERY DAY
     Route: 048
  7. NIFEDIPINE [Concomitant]
     Indication: SYSTEMIC SCLEROSIS
     Dosage: 30 MG, EVERY DAY
     Route: 048
  8. BIFERA [Concomitant]
     Dosage: 1 DF, BID (ONE EACH MORNING AND EVENING)
     Route: 048

REACTIONS (12)
  - ANAEMIA [None]
  - WOUND [None]
  - MUSCLE SPASMS [None]
  - GASTRIC ANTRAL VASCULAR ECTASIA [None]
  - GASTROINTESTINAL HAEMORRHAGE [None]
  - PALPITATIONS [None]
  - HAEMATOCHEZIA [None]
  - DIARRHOEA [None]
  - SKIN TIGHTNESS [None]
  - SKIN HYPOPIGMENTATION [None]
  - VITAMIN D DEFICIENCY [None]
  - DIGITAL ULCER [None]
